FAERS Safety Report 7714087-1 (Version None)
Quarter: 2011Q3

REPORT INFORMATION
  Report Type: 
  Country: None (occurrence: None)
  Receive Date: 20110827
  Receipt Date: 20110817
  Transmission Date: 20111222
  Serious: No
  Sender: FDA-Public Use
  Company Number: US-B.I. PHARMACEUTICALS,INC./RIDGEFIELD-2011-BP-20256BP

PATIENT
  Sex: Male

DRUGS (6)
  1. ASPIRIN [Concomitant]
     Indication: ROUTINE HEALTH MAINTENANCE
     Dosage: 81 MG
     Route: 048
     Dates: start: 20110201
  2. SIMAVASTATIN [Concomitant]
     Indication: BLOOD CHOLESTEROL INCREASED
     Dosage: 20 MG
     Route: 048
     Dates: start: 20110201
  3. PRADAXA [Suspect]
     Indication: ATRIAL FIBRILLATION
     Dosage: 300 MG
     Route: 048
     Dates: start: 20110813
  4. DEXILANT [Concomitant]
     Indication: VARICES OESOPHAGEAL
     Dosage: 60 MG
     Route: 048
     Dates: start: 20100101
  5. PLAVIX [Concomitant]
     Indication: ROUTINE HEALTH MAINTENANCE
     Dosage: 75 MG
     Route: 048
     Dates: start: 20110201
  6. LISINOPRIL [Concomitant]
     Indication: HYPERTENSION
     Dosage: 20 MG
     Route: 048
     Dates: start: 20110801

REACTIONS (1)
  - VISUAL IMPAIRMENT [None]
